FAERS Safety Report 7045769-5 (Version None)
Quarter: 2010Q4

REPORT INFORMATION
  Report Type: 
  Country: None (occurrence: None)
  Receive Date: 20101014
  Receipt Date: 20101004
  Transmission Date: 20110411
  Serious: Yes (Hospitalization, Other)
  Sender: FDA-Public Use
  Company Number: BR-ABBOTT-09P-020-0602930-00

PATIENT
  Sex: Female
  Weight: 84 kg

DRUGS (31)
  1. HUMIRA [Suspect]
     Indication: RHEUMATOID ARTHRITIS
     Route: 058
     Dates: start: 20090227, end: 20090825
  2. HUMIRA [Suspect]
     Route: 058
     Dates: start: 20091014
  3. METHOTREXATE [Concomitant]
     Indication: RHEUMATOID ARTHRITIS
     Route: 048
  4. FOLIC ACID [Concomitant]
     Indication: VITAMIN SUPPLEMENTATION
     Route: 048
  5. CHLOROQUINE, DICLOFENAC [Concomitant]
     Indication: RHEUMATOID ARTHRITIS
     Route: 048
  6. PREDNISONE [Concomitant]
     Indication: RHEUMATOID ARTHRITIS
     Route: 048
     Dates: start: 19890101
  7. DIPYRONE [Concomitant]
     Indication: PAIN
     Route: 048
     Dates: start: 20050726
  8. VOLTAREN [Concomitant]
     Indication: PAIN
     Route: 048
     Dates: start: 20050726
  9. ENALAPRIL MALEATE [Concomitant]
     Indication: HYPERTENSION
     Route: 048
     Dates: start: 19860101
  10. LASIX [Concomitant]
     Indication: HYPERTENSION
     Route: 048
  11. ESPIROLONA [Concomitant]
     Indication: HYPERTENSION
     Route: 048
  12. SUSTRATE [Concomitant]
     Indication: HYPERTENSION
     Route: 048
     Dates: start: 20090203
  13. OMEPRAZOLE [Concomitant]
     Indication: GASTRIC DISORDER
     Route: 048
  14. DIGOXIN [Concomitant]
     Indication: CHEST PAIN
     Route: 048
  15. AMLODIPINE [Concomitant]
     Indication: HYPERTENSION
     Route: 048
  16. LAPTEC [Concomitant]
     Indication: CARDIAC DISORDER
     Route: 048
  17. FLUCONAZOLE [Concomitant]
     Indication: SKIN FISSURES
  18. KETOCONAZOLE [Concomitant]
     Indication: RASH
     Route: 061
  19. ALUMINUM HYDROXIDE GEL [Concomitant]
     Indication: GASTRIC DISORDER
     Route: 048
     Dates: start: 20090302
  20. AEROLIN [Concomitant]
     Indication: BRONCHITIS
     Route: 048
  21. LAVIQUI [Concomitant]
     Indication: SWELLING
     Route: 048
  22. LAVIQUI [Concomitant]
     Indication: DYSURIA
  23. VOLTAREN [Concomitant]
     Dosage: IF PRESENTS PAIN
     Route: 048
     Dates: start: 19890101
  24. CHLOROQUINE PHOSPHATE [Concomitant]
     Indication: RHEUMATOID ARTHRITIS
     Route: 048
  25. RISPERIDONE [Concomitant]
     Indication: HYPERTENSION
     Route: 048
  26. ENALAPRIL MALEATE [Concomitant]
     Indication: HYPERTENSION
     Route: 048
  27. PROMETHAZINE [Concomitant]
     Indication: SEDATIVE THERAPY
  28. FLUOXETINE HCL [Concomitant]
     Indication: DEPRESSION
  29. ISOSORBIDE DINITRATE [Concomitant]
     Indication: PAIN
     Route: 048
  30. ISOSORBIDE DINITRATE [Concomitant]
     Indication: DYSPNOEA
  31. EPISOL [Concomitant]
     Indication: HYPERTENSION
     Route: 048

REACTIONS (20)
  - AGITATION [None]
  - ANAEMIA [None]
  - ARTHRALGIA [None]
  - ATROPHY [None]
  - DYSPNOEA [None]
  - FALL [None]
  - FORMICATION [None]
  - HYPOAESTHESIA [None]
  - INCREASED UPPER AIRWAY SECRETION [None]
  - INJECTION SITE DISCOLOURATION [None]
  - INJECTION SITE PAIN [None]
  - JOINT DISLOCATION [None]
  - JOINT INJURY [None]
  - JOINT SWELLING [None]
  - KNEE OPERATION [None]
  - MUSCULAR WEAKNESS [None]
  - NASAL CONGESTION [None]
  - PAIN [None]
  - SKIN LESION [None]
  - VISUAL IMPAIRMENT [None]
